FAERS Safety Report 4344002-2 (Version None)
Quarter: 2004Q2

REPORT INFORMATION
  Report Type: 
  Country: None (occurrence: None)
  Receive Date: 20040419
  Receipt Date: 20040416
  Transmission Date: 20050107
  Serious: Yes (Hospitalization, Other)
  Sender: FDA-Public Use
  Company Number: HQWYE431412APR04

PATIENT
  Age: 22 Year
  Sex: Female

DRUGS (1)
  1. MINOCIN [Suspect]
     Indication: ACNE

REACTIONS (4)
  - ANGIONEUROTIC OEDEMA [None]
  - BLOOD BILIRUBIN INCREASED [None]
  - CONJUNCTIVITIS [None]
  - SERUM SICKNESS [None]
